FAERS Safety Report 4878849-0 (Version None)
Quarter: 2006Q1

REPORT INFORMATION
  Report Type: 
  Country: None (occurrence: None)
  Receive Date: 20060112
  Receipt Date: 20060103
  Transmission Date: 20060701
  Serious: Yes (Hospitalization)
  Sender: FDA-Public Use
  Company Number: FR-GLAXOSMITHKLINE-B0405868A

PATIENT
  Age: 76 Year
  Sex: Male
  Weight: 79 kg

DRUGS (14)
  1. AVODART [Suspect]
     Dosage: 1CAP PER DAY
     Route: 048
     Dates: start: 20050708, end: 20050712
  2. RIVOTRIL [Suspect]
     Dosage: 20DROP PER DAY
     Route: 048
     Dates: start: 20050622, end: 20050712
  3. VIVALAN [Suspect]
     Dosage: 300MG TWICE PER DAY
     Route: 048
     Dates: start: 20050622, end: 20050712
  4. RISPERDAL [Suspect]
     Dosage: 1UNIT PER DAY
     Route: 048
     Dates: start: 20050622, end: 20050712
  5. CARDENSIEL [Suspect]
     Dosage: 7.5MG PER DAY
     Route: 048
     Dates: start: 20050622, end: 20050712
  6. ZYLORIC 100 [Concomitant]
     Route: 048
  7. LASILIX [Concomitant]
     Dosage: 40MG UNKNOWN
     Route: 048
     Dates: start: 20050622
  8. IMOVANE [Concomitant]
     Route: 065
  9. LODALES [Concomitant]
     Route: 065
  10. KARDEGIC [Concomitant]
     Route: 065
  11. OMIX LP 0.4 MG [Concomitant]
     Route: 065
  12. TRIFLUCAN 50 MG [Concomitant]
     Route: 065
  13. ARANESP [Concomitant]
     Dosage: 60MG CYCLIC
     Route: 065
  14. DUPHALAC [Concomitant]
     Route: 065

REACTIONS (11)
  - BLOOD CHLORIDE DECREASED [None]
  - BLOOD CREATINE INCREASED [None]
  - COMA [None]
  - CSF PROTEIN INCREASED [None]
  - DEPRESSED LEVEL OF CONSCIOUSNESS [None]
  - EPILEPSY [None]
  - GRAND MAL CONVULSION [None]
  - HYPONATRAEMIA [None]
  - NEUTROPHIL COUNT INCREASED [None]
  - TROPONIN INCREASED [None]
  - WHITE BLOOD CELL COUNT INCREASED [None]
